FAERS Safety Report 5616639-1 (Version None)
Quarter: 2008Q1

REPORT INFORMATION
  Report Type: 
  Country: None (occurrence: None)
  Receive Date: 20080207
  Receipt Date: 20071129
  Transmission Date: 20080703
  Serious: No
  Sender: FDA-Public Use
  Company Number: A0696575A

PATIENT
  Age: 76 Year
  Sex: Female

DRUGS (2)
  1. PAXIL CR [Suspect]
     Dosage: 12.5MG PER DAY
     Route: 048
     Dates: start: 20060701
  2. TIAZAC [Concomitant]

REACTIONS (4)
  - DEHYDRATION [None]
  - DRUG ADMINISTRATION ERROR [None]
  - VOMITING [None]
  - WEIGHT DECREASED [None]
